FAERS Safety Report 8789907 (Version 2)
Quarter: 2013Q2

REPORT INFORMATION
  Report Type: Spontaneous
  Country: US (occurrence: US)
  Receive Date: 20120917
  Receipt Date: 20130527
  Transmission Date: 20140414
  Serious: No
  Sender: FDA-Public Use
  Company Number: US-PFIZER INC-2012226883

PATIENT
  Age: 49 Year
  Sex: Female
  Weight: 57.6 kg

DRUGS (10)
  1. LYRICA [Suspect]
     Indication: FIBROMYALGIA
     Dosage: 25 MG, 1X/DAY
     Dates: start: 2011
  2. LYRICA [Suspect]
     Dosage: 25 MG, 2X/DAY
     Dates: start: 2011, end: 2011
  3. LYRICA [Suspect]
     Dosage: 25 MG, DAILY
     Dates: start: 201208
  4. LYRICA [Suspect]
     Dosage: 100 MG, QHS
  5. MELOXICAM [Suspect]
     Indication: ARTHRITIS
     Dosage: UNK
  6. FIORINAL WITH CODEINE [Concomitant]
     Indication: MIGRAINE
     Dosage: UNK
  7. PERCOCET [Concomitant]
     Dosage: UNK
  8. XANAX [Concomitant]
     Dosage: UNK
  9. TRAZODONE [Concomitant]
     Dosage: UNK
  10. SOMA [Concomitant]
     Indication: MUSCLE RELAXANT THERAPY
     Dosage: UNK

REACTIONS (7)
  - Aggression [Recovered/Resolved]
  - Fibromyalgia [Unknown]
  - Joint swelling [Unknown]
  - Local swelling [Unknown]
  - Fatigue [Recovered/Resolved]
  - Abdominal discomfort [Unknown]
  - Drug ineffective [Unknown]
